FAERS Safety Report 19274741 (Version 1)
Quarter: 2021Q2

REPORT INFORMATION
  Report Type: Spontaneous
  Country: US (occurrence: US)
  Receive Date: 20210519
  Receipt Date: 20210519
  Transmission Date: 20210717
  Serious: Yes (Other)
  Sender: FDA-Public Use
  Company Number: US-PFIZER INC-2021530074

PATIENT
  Age: 58 Year
  Sex: Female

DRUGS (16)
  1. TYLENOL ARTHRITIS PAIN [Concomitant]
     Active Substance: ACETAMINOPHEN
  2. PANTOPRAZOLE SODIUM. [Concomitant]
     Active Substance: PANTOPRAZOLE SODIUM
  3. FUROSEMIDE. [Concomitant]
     Active Substance: FUROSEMIDE
  4. VITAMIN D3 [Concomitant]
     Active Substance: CHOLECALCIFEROL
  5. PREDNISONE. [Concomitant]
     Active Substance: PREDNISONE
  6. ALBUTEROL SULFATE. [Concomitant]
     Active Substance: ALBUTEROL SULFATE
  7. IBRANCE [Suspect]
     Active Substance: PALBOCICLIB
     Indication: BREAST CANCER
     Dosage: 100 MG, ONCE DAILY FOR 21 DAYS
  8. CALCIUM [Concomitant]
     Active Substance: CALCIUM
  9. IRON [Concomitant]
     Active Substance: IRON
  10. FLOVENT [Concomitant]
     Active Substance: FLUTICASONE PROPIONATE
  11. LETROZOLE. [Concomitant]
     Active Substance: LETROZOLE
  12. FLONASE ALLERGY RELIEF [Concomitant]
     Active Substance: FLUTICASONE PROPIONATE
  13. LOSARTAN POTASSIUM. [Concomitant]
     Active Substance: LOSARTAN POTASSIUM
  14. VITAMIN D NOS [Concomitant]
     Active Substance: VITAMIN D NOS
     Dosage: 10 UNK
  15. BENADRYL [Concomitant]
     Active Substance: DIPHENHYDRAMINE HYDROCHLORIDE
  16. ELIQUIS [Concomitant]
     Active Substance: APIXABAN

REACTIONS (2)
  - Blood count abnormal [Unknown]
  - Neuropathy peripheral [Unknown]
